FAERS Safety Report 10411686 (Version 1)
Quarter: 2014Q3

REPORT INFORMATION
  Report Type: Report from Study
  Country: ZA (occurrence: ZA)
  Receive Date: 20140827
  Receipt Date: 20140827
  Transmission Date: 20150326
  Serious: Yes (Hospitalization, Disabling, Other)
  Sender: FDA-Public Use
  Company Number: ZA-BAYER-2014-090952

PATIENT
  Sex: Female

DRUGS (1)
  1. BETAFERON [Suspect]
     Active Substance: INTERFERON BETA-1B

REACTIONS (53)
  - Multiple sclerosis relapse [None]
  - Hypoaesthesia [None]
  - Emotional disorder [None]
  - Nasopharyngitis [None]
  - Pain in extremity [Recovering/Resolving]
  - Musculoskeletal stiffness [None]
  - Constipation [None]
  - Diarrhoea [None]
  - Muscle spasms [None]
  - Paraesthesia [None]
  - Limb discomfort [None]
  - Pyrexia [None]
  - Multiple sclerosis relapse [Recovering/Resolving]
  - Ear pain [None]
  - Hypoaesthesia [None]
  - Vision blurred [None]
  - Vision blurred [None]
  - Visual acuity reduced [None]
  - Abasia [Recovering/Resolving]
  - Nausea [None]
  - Bronchitis [None]
  - Hypoaesthesia [None]
  - Muscular weakness [None]
  - Paraesthesia [None]
  - Muscular weakness [Recovering/Resolving]
  - Pyrexia [Recovered/Resolved]
  - Diplopia [None]
  - Pain [None]
  - Musculoskeletal stiffness [Recovering/Resolving]
  - Headache [None]
  - Muscular weakness [None]
  - Tearfulness [None]
  - Multiple sclerosis relapse [None]
  - H1N1 influenza [None]
  - Abasia [Recovered/Resolved]
  - Peripheral swelling [None]
  - Poor peripheral circulation [None]
  - Multiple sclerosis [None]
  - Hypoaesthesia [None]
  - Musculoskeletal disorder [None]
  - Multiple sclerosis relapse [Recovering/Resolving]
  - Urinary retention [None]
  - Muscular weakness [None]
  - Gait disturbance [None]
  - Gait disturbance [Recovering/Resolving]
  - Musculoskeletal pain [Recovering/Resolving]
  - Multiple sclerosis relapse [None]
  - Pain [None]
  - Gastroenteritis [None]
  - Arthralgia [None]
  - Pain in jaw [None]
  - Eye injury [None]
  - Musculoskeletal pain [None]

NARRATIVE: CASE EVENT DATE: 2007
